FAERS Safety Report 14935059 (Version 1)
Quarter: 2018Q2

REPORT INFORMATION
  Report Type: Spontaneous
  Country: US (occurrence: US)
  Receive Date: 20180506
  Receipt Date: 20180506
  Transmission Date: 20180711
  Serious: Yes (Other)
  Sender: FDA-Public Use
  Company Number: None

PATIENT
  Age: 29 Year
  Sex: Female
  Weight: 75.15 kg

DRUGS (4)
  1. CLINDAMYCIN HCL, CLEOCIN [Suspect]
     Active Substance: CLINDAMYCIN HYDROCHLORIDE
     Indication: BARTHOLIN^S CYST
     Dosage: ?          QUANTITY:1 CAPSULE(S);?
     Route: 048
     Dates: start: 20180330, end: 20180404
  2. FLAGYL [Concomitant]
     Active Substance: METRONIDAZOLE\METRONIDAZOLE HYDROCHLORIDE
  3. PROBIOTIC SUPPLEMENT [Concomitant]
  4. WOMEN^S ONE-A-DAY MULTIVITAMIN [Concomitant]
     Active Substance: VITAMINS

REACTIONS (2)
  - Clostridium difficile infection [None]
  - Drug intolerance [None]

NARRATIVE: CASE EVENT DATE: 20180331
